FAERS Safety Report 7957092-2 (Version None)
Quarter: 2011Q4

REPORT INFORMATION
  Report Type: 
  Country: None (occurrence: None)
  Receive Date: 20111205
  Receipt Date: 20111201
  Transmission Date: 20120403
  Serious: Yes (Life-Threatening, Hospitalization)
  Sender: FDA-Public Use
  Company Number: DE-ROCHE-1014331

PATIENT
  Sex: Female
  Weight: 76 kg

DRUGS (9)
  1. EZETIMIBE [Concomitant]
     Indication: DYSLIPIDAEMIA
  2. RAMIPRIL [Concomitant]
     Indication: HYPERTENSION
  3. FLUOROURACIL [Concomitant]
  4. OXALIPLATIN [Concomitant]
  5. AMLODIPINE [Concomitant]
     Indication: HYPERTENSION
  6. FELODIPINE [Concomitant]
     Indication: HYPERTENSION
  7. BISOPROLOL FUMARATE [Concomitant]
     Indication: HYPERTENSION
  8. LEUCOVORIN CALCIUM [Concomitant]
  9. AVASTIN [Suspect]
     Indication: COLORECTAL CANCER METASTATIC
     Route: 042
     Dates: start: 20110802, end: 20110913

REACTIONS (2)
  - PULMONARY EMBOLISM [None]
  - RESPIRATORY FAILURE [None]
